FAERS Safety Report 11317904 (Version 1)
Quarter: 2015Q3

REPORT INFORMATION
  Report Type: Spontaneous
  Country: US (occurrence: US)
  Receive Date: 20150728
  Receipt Date: 20150728
  Transmission Date: 20151125
  Serious: Yes (Other)
  Sender: FDA-Public Use
  Company Number: US-TEVA-581637USA

PATIENT
  Sex: Female

DRUGS (1)
  1. COPAXONE [Suspect]
     Active Substance: GLATIRAMER ACETATE
     Indication: MULTIPLE SCLEROSIS
     Dosage: FORM STRENGTH UNKNOWN
     Route: 065

REACTIONS (7)
  - Multiple sclerosis relapse [Unknown]
  - Myocardial infarction [Unknown]
  - Chills [Unknown]
  - Tremor [Unknown]
  - Dysstasia [Unknown]
  - Injection site pain [Unknown]
  - Blindness [Unknown]
